FAERS Safety Report 9688665 (Version 1)
Quarter: 2013Q4

REPORT INFORMATION
  Report Type: Spontaneous
  Country: GB (occurrence: GB)
  Receive Date: 20131114
  Receipt Date: 20131114
  Transmission Date: 20140711
  Serious: Yes (Other)
  Sender: FDA-Public Use
  Company Number: PHHY2013GB126550

PATIENT
  Age: 35 Year
  Sex: Male
  Weight: 76.2 kg

DRUGS (3)
  1. OMEPRAZOLE [Suspect]
     Indication: REFLUX LARYNGITIS
     Dosage: UNK
     Route: 048
     Dates: start: 20110101, end: 20110708
  2. LANSOPRAZOLE [Suspect]
     Indication: REFLUX LARYNGITIS
     Route: 048
     Dates: start: 20110804, end: 20111206
  3. RANITIDINE [Suspect]
     Indication: REFLUX LARYNGITIS
     Dosage: 300 MG, UNK
     Route: 048
     Dates: start: 20120107, end: 20131005

REACTIONS (2)
  - Erectile dysfunction [Recovering/Resolving]
  - Dry mouth [Not Recovered/Not Resolved]
